FAERS Safety Report 22082696 (Version 1)
Quarter: 2023Q1

REPORT INFORMATION
  Report Type: Spontaneous
  Country: SA (occurrence: SA)
  Receive Date: 20230310
  Receipt Date: 20230310
  Transmission Date: 20230418
  Serious: Yes (Hospitalization, Other)
  Sender: FDA-Public Use
  Company Number: SA-ALKEM LABORATORIES LIMITED-SA-ALKEM-2023-02708

PATIENT
  Age: 8 Year
  Sex: Female
  Weight: 20 kg

DRUGS (4)
  1. PIPERACILLIN SODIUM\TAZOBACTAM SODIUM [Interacting]
     Active Substance: PIPERACILLIN SODIUM\TAZOBACTAM SODIUM
     Indication: Pneumonia necrotising
     Dosage: 300 MILLIGRAM/KILOGRAM/DAY
     Route: 065
  2. PIPERACILLIN SODIUM\TAZOBACTAM SODIUM [Interacting]
     Active Substance: PIPERACILLIN SODIUM\TAZOBACTAM SODIUM
     Indication: Pyrexia
  3. VANCOMYCIN [Interacting]
     Active Substance: VANCOMYCIN
     Indication: Pancreatitis necrotising
     Dosage: 60 MILLIGRAM/KILOGRAM/DAY
     Route: 065
  4. VANCOMYCIN [Interacting]
     Active Substance: VANCOMYCIN
     Indication: Pyrexia
     Dosage: 80 MILLIGRAM/KILOGRAM/DAY
     Route: 065

REACTIONS (3)
  - Acute kidney injury [Recovered/Resolved]
  - Drug level increased [Recovered/Resolved]
  - Drug interaction [Unknown]
